FAERS Safety Report 11651460 (Version 1)
Quarter: 2015Q4

REPORT INFORMATION
  Report Type: Spontaneous
  Country: US (occurrence: US)
  Receive Date: 20151022
  Receipt Date: 20151022
  Transmission Date: 20160304
  Serious: Yes (Other)
  Sender: FDA-Public Use
  Company Number: US-AMGEN-USASP2015109769

PATIENT
  Age: 66 Year
  Sex: Male

DRUGS (2)
  1. COUMADINE [Concomitant]
     Active Substance: WARFARIN SODIUM
     Dosage: UNK
  2. NEULASTA [Suspect]
     Active Substance: PEGFILGRASTIM
     Indication: PRODUCT USED FOR UNKNOWN INDICATION
     Dosage: UNK UNK, UNK
     Route: 058

REACTIONS (18)
  - Flushing [Unknown]
  - Pyrexia [Unknown]
  - Blood gases abnormal [Unknown]
  - Malaise [Unknown]
  - Joint swelling [Unknown]
  - Thrombosis [Unknown]
  - Bone pain [Unknown]
  - Pneumonia [Unknown]
  - Dysphagia [Unknown]
  - Blood urine present [Recovered/Resolved]
  - Haemothorax [Unknown]
  - White blood cell count abnormal [Recovering/Resolving]
  - Breath sounds abnormal [Unknown]
  - Respiratory distress [Unknown]
  - Nausea [Unknown]
  - Atrial fibrillation [Not Recovered/Not Resolved]
  - Oedema [Unknown]
  - Dyspnoea [Unknown]

NARRATIVE: CASE EVENT DATE: 201509
